FAERS Safety Report 10582933 (Version 1)
Quarter: 2014Q4

REPORT INFORMATION
  Report Type: Report from Study
  Country: GB (occurrence: GB)
  Receive Date: 20141114
  Receipt Date: 20141114
  Transmission Date: 20150529
  Serious: Yes (Disabling)
  Sender: FDA-Public Use
  Company Number: GB-ACCORD-026995

PATIENT
  Age: 41 Year
  Sex: Female

DRUGS (1)
  1. SIMVASTATIN. [Suspect]
     Active Substance: SIMVASTATIN
     Indication: BLOOD CHOLESTEROL INCREASED
     Dosage: GENERIC
     Route: 048

REACTIONS (11)
  - Paraesthesia [Unknown]
  - Myalgia [Unknown]
  - Feeling abnormal [Unknown]
  - Sleep disorder [Unknown]
  - Social avoidant behaviour [Unknown]
  - Tenderness [Unknown]
  - Pain in extremity [Unknown]
  - Quality of life decreased [Unknown]
  - Balance disorder [Unknown]
  - Sensory loss [Unknown]
  - Asthenia [Unknown]
